FAERS Safety Report 11434494 (Version 1)
Quarter: 2015Q3

REPORT INFORMATION
  Report Type: Spontaneous
  Country: US (occurrence: US)
  Receive Date: 20150831
  Receipt Date: 20150831
  Transmission Date: 20151125
  Serious: Yes (Hospitalization)
  Sender: FDA-Public Use
  Company Number: US-JNJFOC-20150820209

PATIENT
  Sex: Female

DRUGS (3)
  1. INVOKANA [Suspect]
     Active Substance: CANAGLIFLOZIN
     Indication: TYPE 2 DIABETES MELLITUS
     Route: 065
  2. HUMALOG [Concomitant]
     Active Substance: INSULIN LISPRO
     Route: 065
  3. LEVEMIR [Concomitant]
     Active Substance: INSULIN DETEMIR
     Route: 065

REACTIONS (3)
  - Surgery [Unknown]
  - Diabetic ketoacidosis [Unknown]
  - Insulin C-peptide decreased [Unknown]
